FAERS Safety Report 5002858-4 (Version None)
Quarter: 2006Q2

REPORT INFORMATION
  Report Type: 
  Country: None (occurrence: None)
  Receive Date: 20060516
  Receipt Date: 20060504
  Transmission Date: 20061013
  Serious: Yes (Other)
  Sender: FDA-Public Use
  Company Number: 2006UW09046

PATIENT
  Age: 23334 Day
  Sex: Male

DRUGS (4)
  1. SEROQUEL [Suspect]
     Indication: AGITATION
     Dosage: 25 MG Q AM AND 100 MG Q HS
     Route: 048
     Dates: start: 20060302, end: 20060427
  2. PARIET [Concomitant]
     Indication: GASTROOESOPHAGEAL REFLUX DISEASE
     Route: 048
  3. METOCLOPRAMIDE [Concomitant]
     Indication: GASTROOESOPHAGEAL REFLUX DISEASE
     Route: 048
  4. RISPERIDONE [Concomitant]
     Indication: AGITATION
     Route: 048
     Dates: end: 20060422

REACTIONS (2)
  - ENURESIS [None]
  - FALL [None]
